FAERS Safety Report 22532637 (Version 1)
Quarter: 2023Q2

REPORT INFORMATION
  Report Type: Report from Study
  Country: DE (occurrence: DE)
  Receive Date: 20230607
  Receipt Date: 20230607
  Transmission Date: 20230721
  Serious: Yes (Hospitalization)
  Sender: FDA-Public Use
  Company Number: DE-002147023-NVSC2020DE034955

PATIENT
  Age: 43 Year
  Sex: Male
  Weight: 100.8 kg

DRUGS (6)
  1. COSENTYX [Suspect]
     Active Substance: SECUKINUMAB
     Indication: Hidradenitis
     Dosage: UNK
     Route: 058
     Dates: start: 20191125, end: 20200106
  2. AMLODIPINE BESYLATE [Concomitant]
     Active Substance: AMLODIPINE BESYLATE
     Indication: Hypertension
     Dosage: UNK
     Route: 065
     Dates: start: 20190802
  3. RAMIPRIL [Concomitant]
     Active Substance: RAMIPRIL
     Indication: Hypertension
     Dosage: UNK
     Route: 065
     Dates: start: 20190802
  4. OCTENIDINE\PHENOXYETHANOL [Concomitant]
     Active Substance: OCTENIDINE\PHENOXYETHANOL
     Indication: Hidradenitis
     Dosage: UNK
     Route: 065
     Dates: start: 20190909
  5. PANTOPRAZOLE SODIUM [Concomitant]
     Active Substance: PANTOPRAZOLE SODIUM
     Indication: Gastrooesophageal reflux disease
     Dosage: UNK
     Route: 065
     Dates: start: 2013
  6. ASPIRIN\PSEUDOEPHEDRINE HYDROCHLORIDE [Concomitant]
     Active Substance: ASPIRIN\PSEUDOEPHEDRINE HYDROCHLORIDE
     Indication: Nasopharyngitis
     Dosage: UNK
     Route: 065
     Dates: start: 20191203, end: 20191206

REACTIONS (1)
  - Colitis ulcerative [Not Recovered/Not Resolved]

NARRATIVE: CASE EVENT DATE: 20191215
